FAERS Safety Report 8507687-2 (Version None)
Quarter: 2012Q3

REPORT INFORMATION
  Report Type: 
  Country: None (occurrence: None)
  Receive Date: 20120713
  Receipt Date: 20120701
  Transmission Date: 20120928
  Serious: Yes (Other)
  Sender: FDA-Public Use
  Company Number: SE-009507513-1207SWE000712

PATIENT

DRUGS (1)
  1. NUVARING [Suspect]
     Route: 067

REACTIONS (4)
  - UNINTENDED PREGNANCY [None]
  - ABORTION [None]
  - MATERNAL EXPOSURE DURING PREGNANCY [None]
  - PREGNANCY WITH CONTRACEPTIVE DEVICE [None]
